FAERS Safety Report 8241838-2 (Version None)
Quarter: 2012Q1

REPORT INFORMATION
  Report Type: 
  Country: None (occurrence: None)
  Receive Date: 20120328
  Receipt Date: 20120319
  Transmission Date: 20120608
  Serious: Yes (Hospitalization)
  Sender: FDA-Public Use
  Company Number: FR-ELI_LILLY_AND_COMPANY-FR201203005478

PATIENT
  Age: 62 Year
  Sex: Female

DRUGS (4)
  1. OXYGEN [Concomitant]
  2. FORTEO [Suspect]
     Indication: OSTEOPOROSIS
     Dosage: 20 UG, QD
     Route: 065
     Dates: start: 20110725
  3. VENTOLIN [Concomitant]
  4. SOLU-MEDROL [Concomitant]

REACTIONS (1)
  - LUNG INFECTION [None]
